FAERS Safety Report 8030104-6 (Version None)
Quarter: 2012Q1

REPORT INFORMATION
  Report Type: 
  Country: None (occurrence: None)
  Receive Date: 20120109
  Receipt Date: 20111228
  Transmission Date: 20120608
  Serious: Yes (Death, Hospitalization)
  Sender: FDA-Public Use
  Company Number: JP-GENZYME-THYM-1001936

PATIENT
  Sex: Male
  Weight: 81 kg

DRUGS (35)
  1. MYCOPHENOLATE MOFETIL [Concomitant]
     Dosage: UNK
     Route: 065
     Dates: start: 20090701, end: 20090717
  2. MEROPENEM [Concomitant]
     Indication: FEBRILE NEUTROPENIA
     Dosage: UNK
     Route: 065
     Dates: start: 20090223, end: 20090227
  3. DORIPENEM HYDRATE [Concomitant]
     Dosage: UNK
     Route: 065
     Dates: start: 20090807, end: 20090811
  4. MYCOPHENOLATE MOFETIL [Concomitant]
     Indication: ACUTE GRAFT VERSUS HOST DISEASE
     Dosage: UNK
     Route: 065
     Dates: start: 20090302, end: 20090327
  5. MEROPENEM [Concomitant]
     Dosage: UNK
     Route: 065
     Dates: start: 20090416, end: 20090430
  6. MEROPENEM [Concomitant]
     Dosage: UNK
     Route: 065
     Dates: start: 20090518, end: 20090528
  7. PAZUFLOXACIN [Concomitant]
     Indication: INFECTION
     Dosage: UNK
     Route: 065
     Dates: start: 20090319, end: 20090326
  8. CEFTAZIDIME [Concomitant]
     Dosage: UNK
     Route: 065
     Dates: start: 20090710, end: 20090723
  9. CORTICOSTEROID NOS [Concomitant]
     Indication: ACUTE GRAFT VERSUS HOST DISEASE
     Dosage: UNK
     Route: 065
     Dates: start: 20090227, end: 20090809
  10. BECLOMETHASONE DIPROPIONATE [Concomitant]
     Indication: ACUTE GRAFT VERSUS HOST DISEASE
     Dosage: UNK
     Route: 065
     Dates: start: 20090521, end: 20090723
  11. CEFEPIME HYDROCHLORIDE [Concomitant]
     Indication: FEBRILE NEUTROPENIA
     Dosage: UNK
     Route: 065
     Dates: start: 20090209, end: 20090216
  12. CEFEPIME HYDROCHLORIDE [Concomitant]
     Dosage: UNK
     Route: 065
     Dates: start: 20090501, end: 20090504
  13. CEFTAZIDIME [Concomitant]
     Dosage: UNK
     Route: 065
     Dates: start: 20090626, end: 20090630
  14. CEFOTIAM HYDROCHLORIDE [Concomitant]
     Indication: INFECTION
     Dosage: UNK
     Route: 065
     Dates: start: 20090529, end: 20090611
  15. CEFEPIME HYDROCHLORIDE [Concomitant]
     Indication: INFECTION
     Dosage: UNK
     Route: 065
     Dates: start: 20090228, end: 20090303
  16. CEFEPIME HYDROCHLORIDE [Concomitant]
     Dosage: UNK
     Route: 065
     Dates: start: 20090408, end: 20090412
  17. PIPERACILLIN W [Concomitant]
     Indication: FEBRILE NEUTROPENIA
     Dosage: UNK
     Route: 065
     Dates: start: 20090219, end: 20090222
  18. PAZUFLOXACIN [Concomitant]
     Dosage: UNK
     Route: 065
     Dates: start: 20090612, end: 20090625
  19. DORIPENEM HYDRATE [Concomitant]
     Dosage: UNK
     Route: 065
     Dates: start: 20090701, end: 20090709
  20. TEICOPLANIN [Concomitant]
     Indication: INFECTION
     Dosage: UNK
     Route: 065
     Dates: start: 20090224, end: 20090301
  21. AMPHOTERICIN B [Concomitant]
     Indication: ANTIFUNGAL PROPHYLAXIS
     Dosage: UNK
     Route: 065
     Dates: start: 20090414, end: 20090811
  22. ACYCLOVIR [Concomitant]
     Indication: ANTIVIRAL PROPHYLAXIS
     Dosage: UNK
     Route: 065
     Dates: start: 20090206, end: 20090811
  23. MEROPENEM [Concomitant]
     Indication: INFECTION
     Dosage: UNK
     Route: 065
     Dates: start: 20090401, end: 20090407
  24. THYMOGLOBULIN [Suspect]
     Dosage: 100 MG, QD
     Route: 042
     Dates: start: 20090306, end: 20090310
  25. METHYLPREDNISOLONE SODIUM SUCCINATE [Concomitant]
     Indication: ACUTE GRAFT VERSUS HOST DISEASE
     Dosage: UNK
     Route: 065
     Dates: start: 20090301, end: 20090622
  26. TACROLIMUS [Concomitant]
     Indication: PROPHYLAXIS AGAINST GRAFT VERSUS HOST DISEASE
     Dosage: UNK
     Route: 065
     Dates: start: 20090212, end: 20090706
  27. CEFEPIME HYDROCHLORIDE [Concomitant]
     Dosage: UNK
     Route: 065
     Dates: start: 20090724, end: 20090806
  28. PAZUFLOXACIN [Concomitant]
     Dosage: UNK
     Route: 065
     Dates: start: 20090413, end: 20090415
  29. DORIPENEM HYDRATE [Concomitant]
     Indication: INFECTION
     Dosage: UNK
     Route: 065
     Dates: start: 20090505, end: 20090517
  30. MICAFUNGIN SODIUM [Concomitant]
     Indication: ANTIFUNGAL PROPHYLAXIS
     Dosage: UNK
     Route: 065
     Dates: start: 20090130, end: 20090304
  31. VORICONAZOLE [Concomitant]
     Indication: ANTIFUNGAL PROPHYLAXIS
     Dosage: UNK
     Route: 065
     Dates: start: 20090305, end: 20090413
  32. PREDNISOLONE [Concomitant]
     Indication: ACUTE GRAFT VERSUS HOST DISEASE
     Dosage: UNK
     Route: 065
     Dates: start: 20090623, end: 20090811
  33. PIPERACILLIN W [Concomitant]
     Indication: INFECTION
     Dosage: UNK
     Route: 065
     Dates: start: 20090304, end: 20090318
  34. CEFTAZIDIME [Concomitant]
     Indication: INFECTION
     Dosage: UNK
     Route: 065
     Dates: start: 20090327, end: 20090331
  35. TEICOPLANIN [Concomitant]
     Dosage: UNK
     Route: 065
     Dates: start: 20090701, end: 20090709

REACTIONS (2)
  - CYTOMEGALOVIRUS TEST POSITIVE [None]
  - CYSTITIS HAEMORRHAGIC [None]
